FAERS Safety Report 9097719 (Version 1)
Quarter: 2013Q1

REPORT INFORMATION
  Report Type: Spontaneous
  Country: US (occurrence: US)
  Receive Date: 20130212
  Receipt Date: 20130212
  Transmission Date: 20140127
  Serious: No
  Sender: FDA-Public Use
  Company Number: US-BAYER-2013-012506

PATIENT
  Age: 44 Year
  Sex: Female
  Weight: 59.86 kg

DRUGS (10)
  1. ALEVE CAPLET/TABLET,MIDOL EXTENDED RELIEF CAPLET [Suspect]
     Indication: MYALGIA
     Dosage: 1 DF, UNK
     Route: 048
     Dates: start: 2011, end: 2011
  2. ALEVE CAPLET/TABLET,MIDOL EXTENDED RELIEF CAPLET [Suspect]
     Indication: MYALGIA
     Dosage: 2 DF, UNK
     Route: 048
     Dates: start: 2011, end: 2011
  3. CHEMOTHERAPEUTICS NOS [Concomitant]
  4. MULTI-VITAMIN [Concomitant]
  5. FISH OIL [Concomitant]
  6. TAMOXIFEN [Concomitant]
  7. PRAVASTATIN [Concomitant]
  8. BABY ASPIRIN [Concomitant]
  9. METAMUCIL [Concomitant]
  10. XANAX [Concomitant]

REACTIONS (1)
  - Drug ineffective [None]
